FAERS Safety Report 4743471-3 (Version None)
Quarter: 2005Q3

REPORT INFORMATION
  Report Type: 
  Country: None (occurrence: None)
  Receive Date: 20050809
  Receipt Date: 20050719
  Transmission Date: 20060218
  Serious: Yes (Hospitalization, Other)
  Sender: FDA-Public Use
  Company Number: ENT 2005-0106

PATIENT
  Age: 71 Year
  Sex: Male

DRUGS (5)
  1. COMTAN [Suspect]
     Dosage: 600 MG ORAL
     Route: 048
  2. PARLODEL [Suspect]
     Dosage: 60 MG ORAL
     Route: 048
  3. MODOPAR [Suspect]
     Dosage: 25/100 MG X 3 ORAL
     Route: 048
  4. URBANYL [Suspect]
     Dosage: 10 MG ORAL
     Route: 048
  5. EFFERALGAN [Suspect]
     Dosage: 4 G ORAL
     Route: 048

REACTIONS (4)
  - ANXIETY [None]
  - DYSPNOEA [None]
  - LEUKAEMIA [None]
  - SINUS ARRHYTHMIA [None]
